FAERS Safety Report 21263162 (Version 6)
Quarter: 2025Q3

REPORT INFORMATION
  Report Type: Spontaneous
  Country: EU (occurrence: EU)
  Receive Date: 20220828
  Receipt Date: 20250924
  Transmission Date: 20251021
  Serious: Yes (Other)
  Sender: BIOVITRUM
  Company Number: EU-BIOVITRUM-2022FR09796

PATIENT
  Age: 3 Year
  Sex: Female
  Weight: 16.6 kg

DRUGS (35)
  1. ANAKINRA [Suspect]
     Active Substance: ANAKINRA
     Indication: Still^s disease
  2. THALIDOMIDE [Suspect]
     Active Substance: THALIDOMIDE
     Indication: Still^s disease
  3. MYCOPHENOLATE MOFETIL [Suspect]
     Active Substance: MYCOPHENOLATE MOFETIL
     Indication: Prophylaxis against graft versus host disease
  4. RITUXIMAB [Suspect]
     Active Substance: RITUXIMAB
     Indication: Allogenic stem cell transplantation
     Route: 065
  5. RITUXIMAB [Suspect]
     Active Substance: RITUXIMAB
     Indication: Still^s disease
  6. RITUXIMAB [Suspect]
     Active Substance: RITUXIMAB
     Indication: Bone marrow conditioning regimen
  7. RITUXIMAB [Suspect]
     Active Substance: RITUXIMAB
     Indication: Still^s disease
  8. FLUDARABINE [Suspect]
     Active Substance: FLUDARABINE PHOSPHATE
     Indication: Allogenic stem cell transplantation
     Route: 065
  9. FLUDARABINE [Suspect]
     Active Substance: FLUDARABINE PHOSPHATE
     Indication: Still^s disease
  10. FLUDARABINE [Suspect]
     Active Substance: FLUDARABINE PHOSPHATE
     Indication: Bone marrow conditioning regimen
  11. FLUDARABINE [Suspect]
     Active Substance: FLUDARABINE PHOSPHATE
     Indication: Still^s disease
  12. BUSULFAN [Suspect]
     Active Substance: BUSULFAN
     Indication: Allogenic stem cell transplantation
     Route: 065
  13. BUSULFAN [Suspect]
     Active Substance: BUSULFAN
     Indication: Still^s disease
  14. BUSULFAN [Suspect]
     Active Substance: BUSULFAN
     Indication: Bone marrow conditioning regimen
  15. BUSULFAN [Suspect]
     Active Substance: BUSULFAN
     Indication: Still^s disease
  16. ALEMTUZUMAB [Suspect]
     Active Substance: ALEMTUZUMAB
     Indication: Allogenic stem cell transplantation
     Route: 065
  17. ALEMTUZUMAB [Suspect]
     Active Substance: ALEMTUZUMAB
     Indication: Still^s disease
  18. ALEMTUZUMAB [Suspect]
     Active Substance: ALEMTUZUMAB
     Indication: Bone marrow conditioning regimen
  19. ALEMTUZUMAB [Suspect]
     Active Substance: ALEMTUZUMAB
     Indication: Still^s disease
  20. ADALIMUMAB [Suspect]
     Active Substance: ADALIMUMAB
     Indication: Still^s disease
  21. CYCLOPHOSPHAMIDE [Suspect]
     Active Substance: CYCLOPHOSPHAMIDE
     Indication: Prophylaxis against graft versus host disease
  22. CYCLOPHOSPHAMIDE [Suspect]
     Active Substance: CYCLOPHOSPHAMIDE
     Indication: Prophylaxis against graft versus host disease
  23. CANAKINUMAB [Suspect]
     Active Substance: CANAKINUMAB
     Indication: Still^s disease
  24. CYCLOSPORINE [Suspect]
     Active Substance: CYCLOSPORINE
     Indication: Prophylaxis against graft versus host disease
  25. INDOMETHACIN [Suspect]
     Active Substance: INDOMETHACIN
     Indication: Still^s disease
  26. INFLIXIMAB [Suspect]
     Active Substance: INFLIXIMAB
     Indication: Graft versus host disease in gastrointestinal tract
  27. INFLIXIMAB [Suspect]
     Active Substance: INFLIXIMAB
     Indication: Still^s disease
  28. METHOTREXATE [Suspect]
     Active Substance: METHOTREXATE
     Indication: Still^s disease
  29. METHYLPREDNISOLONE [Suspect]
     Active Substance: METHYLPREDNISOLONE
     Indication: Still^s disease
  30. PENICILLIN V [Suspect]
     Active Substance: PENICILLIN V
     Indication: Prophylaxis
  31. PREDNISOLONE [Suspect]
     Active Substance: PREDNISOLONE
     Indication: Still^s disease
  32. PREDNISOLONE [Suspect]
     Active Substance: PREDNISOLONE
  33. ACYCLOVIR [Concomitant]
     Active Substance: ACYCLOVIR
     Indication: Product used for unknown indication
  34. HYDROCORTISONE [Concomitant]
     Active Substance: HYDROCORTISONE
     Indication: Product used for unknown indication
  35. TOCILIZUMAB [Concomitant]
     Active Substance: TOCILIZUMAB
     Indication: Still^s disease

REACTIONS (41)
  - Infection reactivation [Unknown]
  - Hyperplasia [Unknown]
  - Superinfection bacterial [Unknown]
  - Drug ineffective for unapproved indication [Unknown]
  - Thrombocytopenia [Unknown]
  - Hypertension [Unknown]
  - Cushingoid [Unknown]
  - Impaired quality of life [Unknown]
  - Growth retardation [Recovering/Resolving]
  - C-reactive protein increased [Unknown]
  - Herpes zoster [Unknown]
  - Infection [Unknown]
  - Condition aggravated [Unknown]
  - Vitiligo [Unknown]
  - Autoimmune thyroiditis [Unknown]
  - Toxicity to various agents [Unknown]
  - Obliterative bronchiolitis [Unknown]
  - Congenital aplasia [Recovered/Resolved]
  - Acute graft versus host disease in skin [Recovering/Resolving]
  - Red blood cell sedimentation rate increased [Unknown]
  - Secondary adrenocortical insufficiency [Unknown]
  - Focal nodular hyperplasia [Unknown]
  - Joint effusion [Recovered/Resolved]
  - Ill-defined disorder [Unknown]
  - Cellulitis staphylococcal [Recovered/Resolved]
  - Lung disorder [Recovered/Resolved]
  - Pulmonary function test abnormal [Recovered/Resolved]
  - Actinomycotic sepsis [Unknown]
  - Clostridium difficile colitis [Recovered/Resolved]
  - Osteopenia [Unknown]
  - Immune thrombocytopenia [Recovering/Resolving]
  - Graft versus host disease in skin [Recovering/Resolving]
  - Arthralgia [Unknown]
  - Graft versus host disease in gastrointestinal tract [Recovered/Resolved]
  - Hypothyroidism [Unknown]
  - Hepatic cytolysis [Unknown]
  - Herpes zoster infection neurological [Unknown]
  - Still^s disease [Recovering/Resolving]
  - Bacterial sepsis [Unknown]
  - Inflammation [Unknown]
  - Varicella zoster virus infection [Unknown]
